FAERS Safety Report 13130556 (Version 3)
Quarter: 2017Q1

REPORT INFORMATION
  Report Type: Spontaneous
  Country: JP (occurrence: JP)
  Receive Date: 20170119
  Receipt Date: 20170203
  Transmission Date: 20170428
  Serious: Yes (Death)
  Sender: FDA-Public Use
  Company Number: JP-PFIZER INC-2017020858

PATIENT
  Age: 84 Year
  Sex: Female
  Weight: 37 kg

DRUGS (1)
  1. SELARA [Suspect]
     Active Substance: EPLERENONE

REACTIONS (2)
  - Marasmus [Fatal]
  - Cardiac failure [Fatal]
